FAERS Safety Report 6337769-5 (Version None)
Quarter: 2009Q3

REPORT INFORMATION
  Report Type: 
  Country: None (occurrence: None)
  Receive Date: 20090902
  Receipt Date: 20090902
  Transmission Date: 20100115
  Serious: Yes (Hospitalization, Other)
  Sender: FDA-Public Use
  Company Number: US-ABBOTT-09P-163-0592162-00

PATIENT
  Sex: Female
  Weight: 57.658 kg

DRUGS (2)
  1. SYNTHROID [Suspect]
     Indication: HYPOTHYROIDISM
     Route: 048
     Dates: start: 19690101
  2. SUPPOSITORIES [Concomitant]
     Route: 054
     Dates: end: 20090101

REACTIONS (12)
  - BARRETT'S OESOPHAGUS [None]
  - BLOOD CALCIUM DECREASED [None]
  - BLOOD POTASSIUM DECREASED [None]
  - DERMATITIS [None]
  - GINGIVAL DISORDER [None]
  - HEPATITIS [None]
  - INTESTINAL POLYP [None]
  - MUSCLE SPASMS [None]
  - OSTEOPENIA [None]
  - PRECANCEROUS CELLS PRESENT [None]
  - SYNCOPE [None]
  - TOOTH LOSS [None]
